FAERS Safety Report 9595186 (Version 1)
Quarter: 2013Q3

REPORT INFORMATION
  Report Type: Spontaneous
  Country: US (occurrence: None)
  Receive Date: 20130927
  Receipt Date: 20130927
  Transmission Date: 20140515
  Serious: Yes (Other)
  Sender: FDA-Public Use
  Company Number: CABO-13003058

PATIENT
  Age: 64 Year
  Sex: Male
  Weight: 90.9 kg

DRUGS (6)
  1. COMETRIQ (CABOZANTINIB) CAPSULE [Suspect]
     Indication: RENAL CANCER
     Route: 048
     Dates: start: 20130611, end: 20130625
  2. ATENOLOL [Concomitant]
  3. CLONIDINE [Concomitant]
  4. ADVAIR [Concomitant]
  5. BENICAR [Concomitant]
  6. ASPIRIN [Concomitant]

REACTIONS (1)
  - Hypertension [None]
